FAERS Safety Report 4844939-1 (Version None)
Quarter: 2005Q4

REPORT INFORMATION
  Report Type: 
  Country: None (occurrence: None)
  Receive Date: 20051205
  Receipt Date: 20051123
  Transmission Date: 20060501
  Serious: Yes (Hospitalization)
  Sender: FDA-Public Use
  Company Number: FR-BRISTOL-MYERS SQUIBB COMPANY-13194832

PATIENT
  Age: 52 Year
  Sex: Female

DRUGS (6)
  1. BRISTOPEN [Suspect]
     Dates: end: 20051011
  2. ENDOTELON [Suspect]
     Dates: end: 20051011
  3. NOCTRAN [Suspect]
     Dates: end: 20051011
  4. ATHYMIL [Suspect]
     Dates: end: 20051011
  5. ADVIL [Suspect]
     Indication: ERYSIPELAS
     Dates: end: 20051011
  6. EFFERALGAN [Concomitant]

REACTIONS (2)
  - ALANINE AMINOTRANSFERASE INCREASED [None]
  - HEPATITIS CHOLESTATIC [None]
